FAERS Safety Report 22222459 (Version 1)
Quarter: 2023Q2

REPORT INFORMATION
  Report Type: Spontaneous
  Country: US (occurrence: US)
  Receive Date: 20230418
  Receipt Date: 20230418
  Transmission Date: 20230722
  Serious: Yes (Hospitalization, Other)
  Sender: FDA-Public Use
  Company Number: US-002147023-NVSC2023US085647

PATIENT
  Sex: Male

DRUGS (1)
  1. ZOMETA [Suspect]
     Active Substance: ZOLEDRONIC ACID
     Indication: Product used for unknown indication
     Dosage: UNK
     Route: 065

REACTIONS (17)
  - Fall [Unknown]
  - Internal haemorrhage [Unknown]
  - Rectal haemorrhage [Unknown]
  - Haemorrhage [Unknown]
  - Loose tooth [Unknown]
  - Tinnitus [Unknown]
  - Pain in extremity [Unknown]
  - Gingival pain [Unknown]
  - Gait disturbance [Unknown]
  - Balance disorder [Unknown]
  - Palpitations [Unknown]
  - Dental discomfort [Unknown]
  - Pain [Unknown]
  - Sleep disorder [Unknown]
  - Hypoaesthesia [Unknown]
  - Body temperature increased [Unknown]
  - Dizziness postural [Unknown]
